FAERS Safety Report 6638976-4 (Version None)
Quarter: 2010Q1

REPORT INFORMATION
  Report Type: 
  Country: None (occurrence: None)
  Receive Date: 20100316
  Receipt Date: 20100316
  Transmission Date: 20100710
  Serious: Yes (Hospitalization)
  Sender: FDA-Public Use
  Company Number: None

PATIENT
  Sex: Female
  Weight: 77 kg

DRUGS (3)
  1. CHANTIX [Suspect]
     Indication: SMOKING CESSATION THERAPY
     Dosage: 1MG TWICE DAILY PO
     Route: 048
     Dates: start: 20100218, end: 20100310
  2. CYMBALTA [Concomitant]
  3. GABAPENTIN [Concomitant]

REACTIONS (7)
  - CONFUSIONAL STATE [None]
  - CRYING [None]
  - DEPRESSION [None]
  - DISORIENTATION [None]
  - EUPHORIC MOOD [None]
  - MOOD SWINGS [None]
  - SUICIDAL IDEATION [None]
